FAERS Safety Report 8110227-3 (Version None)
Quarter: 2012Q1

REPORT INFORMATION
  Report Type: 
  Country: None (occurrence: None)
  Receive Date: 20120202
  Receipt Date: 20120126
  Transmission Date: 20120608
  Serious: No
  Sender: FDA-Public Use
  Company Number: US-AMGEN-USASP2012005069

PATIENT
  Age: 53 Year
  Sex: Female

DRUGS (12)
  1. PROZAC [Concomitant]
     Dosage: UNK MG, UNK
  2. LOVASTATIN [Concomitant]
     Dosage: UNK MG, UNK
  3. HYDROXYZINE [Concomitant]
     Dosage: UNK MG,
  4. DYAZIDE [Concomitant]
     Dosage: 37.5/25MG
  5. FOLIC ACID [Concomitant]
     Dosage: UNK MG,
  6. DICLOFENAC SODIUM [Concomitant]
     Dosage: UNK MG,
  7. TYLENOL (CAPLET) [Concomitant]
     Dosage: UNK
  8. ENBREL [Suspect]
     Indication: PSORIATIC ARTHROPATHY
  9. ENBREL [Suspect]
     Indication: PSORIASIS
     Dosage: 50 MG, QWK
     Dates: start: 20120112
  10. VOLTAREN [Concomitant]
     Dosage: UNK
  11. TRIAMCINOLONE [Concomitant]
     Dosage: UNK
  12. FISH OIL [Concomitant]
     Dosage: UNK

REACTIONS (11)
  - ARTHRALGIA [None]
  - RASH ERYTHEMATOUS [None]
  - INJECTION SITE ERYTHEMA [None]
  - INJECTION SITE WARMTH [None]
  - INJECTION SITE HAEMATOMA [None]
  - RASH PAPULAR [None]
  - EXFOLIATIVE RASH [None]
  - INJECTION SITE URTICARIA [None]
  - RASH [None]
  - INJECTION SITE REACTION [None]
  - INJECTION SITE RASH [None]
